FAERS Safety Report 11669641 (Version 2)
Quarter: 2015Q4

REPORT INFORMATION
  Report Type: Spontaneous
  Country: US (occurrence: US)
  Receive Date: 20151027
  Receipt Date: 20151110
  Transmission Date: 20160304
  Serious: No
  Sender: FDA-Public Use
  Company Number: US-ELI_LILLY_AND_COMPANY-US201003000311

PATIENT
  Age: 71 Year
  Sex: Female

DRUGS (4)
  1. FORTEO [Suspect]
     Active Substance: TERIPARATIDE
     Dosage: 20 UG, DAILY (1/D)
     Route: 065
     Dates: start: 201003
  2. CO-Q10 [Concomitant]
     Indication: SUPPLEMENTATION THERAPY
  3. FORTEO [Suspect]
     Active Substance: TERIPARATIDE
     Indication: OSTEOPOROSIS
     Dosage: 20 UG, DAILY (1/D)
     Route: 065
     Dates: start: 20100219, end: 201003
  4. FORTEO [Suspect]
     Active Substance: TERIPARATIDE
     Dosage: 20 UG, DAILY (1/D)
     Route: 065
     Dates: end: 201109

REACTIONS (17)
  - Erythema [Unknown]
  - Pain in extremity [Unknown]
  - Sensory disturbance [Unknown]
  - Muscle spasms [Unknown]
  - Musculoskeletal pain [Unknown]
  - Musculoskeletal chest pain [Unknown]
  - Arthralgia [Unknown]
  - Laryngitis [Not Recovered/Not Resolved]
  - Headache [Unknown]
  - Pain [Unknown]
  - Listless [Unknown]
  - Limb discomfort [Unknown]
  - Rash [Unknown]
  - Drug ineffective [Unknown]
  - Paraesthesia [Unknown]
  - Insomnia [Unknown]
  - Bone pain [Unknown]

NARRATIVE: CASE EVENT DATE: 2010
